FAERS Safety Report 25408373 (Version 1)
Quarter: 2025Q2

REPORT INFORMATION
  Report Type: Spontaneous
  Country: US (occurrence: US)
  Receive Date: 20250606
  Receipt Date: 20250606
  Transmission Date: 20250717
  Serious: No
  Sender: EVOLUS, INC.
  Company Number: US-Evolus, Inc.-2025EV000274

PATIENT
  Age: 31 Year
  Sex: Female

DRUGS (1)
  1. HYALURONIC ACID\LIDOCAINE HYDROCHLORIDE [Suspect]
     Active Substance: HYALURONIC ACID\LIDOCAINE HYDROCHLORIDE
     Indication: Device use issue

REACTIONS (6)
  - Vessel puncture site occlusion [Recovered/Resolved]
  - Swelling [Recovered/Resolved]
  - Contusion [Recovered/Resolved]
  - Injection site discolouration [Recovered/Resolved]
  - Device issue [Unknown]
  - Off label use of device [Unknown]

NARRATIVE: CASE EVENT DATE: 20250507
